FAERS Safety Report 15742296 (Version 1)
Quarter: 2018Q4

REPORT INFORMATION
  Report Type: Spontaneous
  Country: US (occurrence: US)
  Receive Date: 20181219
  Receipt Date: 20181219
  Transmission Date: 20190205
  Serious: No
  Sender: FDA-Public Use
  Company Number: US-TARO-2017TAR01093

PATIENT
  Age: 76 Year
  Sex: Female
  Weight: 62.59 kg

DRUGS (6)
  1. VITAMIN E [Concomitant]
     Active Substance: .ALPHA.-TOCOPHEROL
  2. HYDROCORTISONE CREAM USP 2.5% [Suspect]
     Active Substance: HYDROCORTISONE
     Indication: PRURITUS
     Dosage: ^SMALL AMOUNT,^ 2X/DAY
     Route: 061
     Dates: start: 2017, end: 201711
  3. FOSAMAX [Concomitant]
     Active Substance: ALENDRONATE SODIUM
     Dosage: 70 MG, 1X/WEEK
  4. VITAMIN C [Concomitant]
     Active Substance: ASCORBIC ACID
  5. HYDROCORTISONE CREAM USP 1% (OTC) [Suspect]
     Active Substance: HYDROCORTISONE
     Indication: PRURITUS
     Dosage: ^SMALL AMOUNT,^ 2X/DAY
     Route: 061
     Dates: start: 20171029, end: 2017
  6. VITAMIN D3 [Concomitant]
     Active Substance: CHOLECALCIFEROL

REACTIONS (2)
  - Drug ineffective [Recovered/Resolved]
  - Drug effect incomplete [Recovered/Resolved]

NARRATIVE: CASE EVENT DATE: 2017
